FAERS Safety Report 6981278-7 (Version None)
Quarter: 2010Q3

REPORT INFORMATION
  Report Type: 
  Country: None (occurrence: None)
  Receive Date: 20100909
  Receipt Date: 20100825
  Transmission Date: 20110219
  Serious: Yes (Hospitalization, Other)
  Sender: FDA-Public Use
  Company Number: A-NJ2008-22411

PATIENT
  Age: 51 Year
  Sex: Female
  Weight: 113.4 kg

DRUGS (5)
  1. TRACLEER [Suspect]
     Indication: PULMONARY ARTERIAL HYPERTENSION
     Dosage: 62.5 MG, BID, ORAL, 125 MG, BID, ORAL, 62.5 MG, BID, 62.5 MG, QD, ORAL
     Route: 048
     Dates: start: 20080817, end: 20080901
  2. TRACLEER [Suspect]
     Indication: PULMONARY ARTERIAL HYPERTENSION
     Dosage: 62.5 MG, BID, ORAL, 125 MG, BID, ORAL, 62.5 MG, BID, 62.5 MG, QD, ORAL
     Route: 048
     Dates: start: 20080901, end: 20081104
  3. TRACLEER [Suspect]
     Indication: PULMONARY ARTERIAL HYPERTENSION
     Dosage: 62.5 MG, BID, ORAL, 125 MG, BID, ORAL, 62.5 MG, BID, 62.5 MG, QD, ORAL
     Route: 048
     Dates: start: 20081105, end: 20081201
  4. TRACLEER [Suspect]
     Indication: PULMONARY ARTERIAL HYPERTENSION
     Dosage: 62.5 MG, BID, ORAL, 125 MG, BID, ORAL, 62.5 MG, BID, 62.5 MG, QD, ORAL
     Route: 048
     Dates: start: 20100807
  5. DOXEPIN HCL [Concomitant]

REACTIONS (14)
  - ARTHRALGIA [None]
  - BLOOD MAGNESIUM DECREASED [None]
  - BLOOD POTASSIUM DECREASED [None]
  - CYSTITIS [None]
  - DECREASED APPETITE [None]
  - FATIGUE [None]
  - HEADACHE [None]
  - HEPATITIS [None]
  - NAUSEA [None]
  - NERVOUSNESS [None]
  - OEDEMA [None]
  - PALPITATIONS [None]
  - TREMOR [None]
  - URINE COLOUR ABNORMAL [None]
